FAERS Safety Report 9046630 (Version 1)
Quarter: 2013Q1

REPORT INFORMATION
  Report Type: Spontaneous
  Country: DE (occurrence: DE)
  Receive Date: 20130204
  Receipt Date: 20130204
  Transmission Date: 20140127
  Serious: Yes (Hospitalization)
  Sender: FDA-Public Use
  Company Number: DE-BIOGENIDEC-2013BI009210

PATIENT
  Age: 41 Year
  Sex: Male
  Weight: 94 kg

DRUGS (1)
  1. AVONEX [Suspect]
     Indication: MULTIPLE SCLEROSIS
     Route: 030
     Dates: start: 20120217

REACTIONS (3)
  - Chills [Recovered/Resolved]
  - Headache [Recovered/Resolved]
  - Visual impairment [Recovered/Resolved]
